FAERS Safety Report 19074413 (Version 1)
Quarter: 2021Q1

REPORT INFORMATION
  Report Type: Spontaneous
  Country: CH (occurrence: CH)
  Receive Date: 20210330
  Receipt Date: 20210330
  Transmission Date: 20210420
  Serious: No
  Sender: FDA-Public Use
  Company Number: CH-ROCHE-2794324

PATIENT
  Sex: Female

DRUGS (1)
  1. OCREVUS [Suspect]
     Active Substance: OCRELIZUMAB
     Indication: MULTIPLE SCLEROSIS RELAPSE
     Route: 065
     Dates: start: 202009

REACTIONS (6)
  - Arthralgia [Unknown]
  - Fatigue [Unknown]
  - Taste disorder [Unknown]
  - Listless [Unknown]
  - Parosmia [Unknown]
  - Suspected COVID-19 [Unknown]
